FAERS Safety Report 15218804 (Version 3)
Quarter: 2018Q4

REPORT INFORMATION
  Report Type: Report from Study
  Country: None (occurrence: AU)
  Receive Date: 20180731
  Receipt Date: 20181002
  Transmission Date: 20190204
  Serious: Yes (Other)
  Sender: FDA-Public Use
  Company Number: AU-ABBVIE-18K-008-2430147-00

PATIENT
  Age: 28 Year
  Sex: Female

DRUGS (18)
  1. IRON [Suspect]
     Active Substance: IRON
     Indication: PRODUCT USED FOR UNKNOWN INDICATION
     Route: 065
     Dates: start: 201807
  2. DIAZEPAM. [Concomitant]
     Active Substance: DIAZEPAM
     Indication: PRODUCT USED FOR UNKNOWN INDICATION
     Dosage: EACH NIGHT
  3. METHYLPHENIDATE. [Concomitant]
     Active Substance: METHYLPHENIDATE
     Indication: PRODUCT USED FOR UNKNOWN INDICATION
  4. HUMIRA [Suspect]
     Active Substance: ADALIMUMAB
     Indication: HIDRADENITIS
     Route: 058
     Dates: start: 201803, end: 201809
  5. SUSTAGEN [Concomitant]
     Indication: NUTRITIONAL SUPPLEMENTATION
  6. PREGABALIN. [Concomitant]
     Active Substance: PREGABALIN
     Dosage: EACH NIGHT
  7. LITHIUM. [Concomitant]
     Active Substance: LITHIUM
     Indication: BIPOLAR DISORDER
  8. BUDESONIDE. [Concomitant]
     Active Substance: BUDESONIDE
     Indication: PRODUCT USED FOR UNKNOWN INDICATION
  9. QUETIAPINE. [Concomitant]
     Active Substance: QUETIAPINE
     Indication: PRODUCT USED FOR UNKNOWN INDICATION
     Dosage: EACH NIGHT
  10. ESOMEPRAZOLE. [Concomitant]
     Active Substance: ESOMEPRAZOLE MAGNESIUM
     Indication: PRODUCT USED FOR UNKNOWN INDICATION
     Dosage: DAILY
  11. IRON [Concomitant]
     Active Substance: IRON
     Indication: MINERAL SUPPLEMENTATION
  12. OXYCODONE [Concomitant]
     Active Substance: OXYCODONE
     Indication: PRODUCT USED FOR UNKNOWN INDICATION
  13. NORETHISTERONE [Concomitant]
     Active Substance: NORETHINDRONE
     Indication: PRODUCT USED FOR UNKNOWN INDICATION
  14. AMITRIPTYLINE [Concomitant]
     Active Substance: AMITRIPTYLINE
     Indication: PRODUCT USED FOR UNKNOWN INDICATION
     Dosage: EACH NIGHT
  15. IRON [Suspect]
     Active Substance: IRON
     Route: 065
     Dates: start: 201807
  16. CHOLECALCIFEROL [Concomitant]
     Active Substance: CHOLECALCIFEROL
     Indication: PRODUCT USED FOR UNKNOWN INDICATION
     Dosage: DAILY
  17. PREGABALIN. [Concomitant]
     Active Substance: PREGABALIN
     Indication: PRODUCT USED FOR UNKNOWN INDICATION
     Dosage: EVERY MORNING
  18. NICOTINE. [Concomitant]
     Active Substance: NICOTINE
     Indication: PRODUCT USED FOR UNKNOWN INDICATION

REACTIONS (36)
  - Stress [Unknown]
  - Ear discomfort [Recovered/Resolved]
  - Injection site rash [Unknown]
  - Injection site mass [Unknown]
  - Attention deficit/hyperactivity disorder [Unknown]
  - Hidradenitis [Not Recovered/Not Resolved]
  - Rash [Unknown]
  - Colitis microscopic [Unknown]
  - Injection site bruising [Unknown]
  - Device issue [Unknown]
  - Drug dispensed to wrong patient [Unknown]
  - Wound complication [Not Recovered/Not Resolved]
  - Skin swelling [Unknown]
  - Rash erythematous [Not Recovered/Not Resolved]
  - Blood iron decreased [Unknown]
  - Toothache [Not Recovered/Not Resolved]
  - Vitamin D decreased [Unknown]
  - Heart rate increased [Unknown]
  - Photosensitivity reaction [Unknown]
  - Peripheral swelling [Unknown]
  - Hypophagia [Unknown]
  - Constipation [Unknown]
  - Anxiety [Unknown]
  - Ear pain [Recovered/Resolved]
  - Injection site pain [Unknown]
  - Hypersensitivity [Not Recovered/Not Resolved]
  - Burning sensation [Not Recovered/Not Resolved]
  - Gastrointestinal injury [Not Recovered/Not Resolved]
  - Suicidal ideation [Recovering/Resolving]
  - Frequent bowel movements [Not Recovered/Not Resolved]
  - Migraine [Recovered/Resolved]
  - Pain in jaw [Not Recovered/Not Resolved]
  - Irritable bowel syndrome [Unknown]
  - Endometriosis [Unknown]
  - Rash erythematous [Unknown]
  - Injection site pruritus [Unknown]

NARRATIVE: CASE EVENT DATE: 2018
